FAERS Safety Report 9375007 (Version 3)
Quarter: 2014Q1

REPORT INFORMATION
  Report Type: Spontaneous
  Country: FR (occurrence: FR)
  Receive Date: 20130628
  Receipt Date: 20140310
  Transmission Date: 20141002
  Serious: Yes (Other)
  Sender: FDA-Public Use
  Company Number: FR-VERTEX PHARMACEUTICALS INC-2013-007548

PATIENT
  Age: 52 Year
  Sex: Female

DRUGS (5)
  1. INCIVO [Suspect]
     Indication: HEPATITIS C
     Dosage: 2250 MG, UNK
     Dates: start: 20130104, end: 20130329
  2. COPEGUS [Suspect]
     Indication: HEPATITIS C
     Dates: start: 20130208, end: 20130626
  3. COPEGUS [Suspect]
     Dosage: 1000 MG, UNK
     Dates: start: 20130104, end: 20130208
  4. PEGASYS [Suspect]
     Indication: HEPATITIS C
     Route: 058
     Dates: start: 20130104, end: 20130626
  5. ESOMEPRAZOL [Concomitant]
     Indication: GASTROOESOPHAGEAL REFLUX DISEASE

REACTIONS (2)
  - Neutropenia [Recovered/Resolved]
  - Anaemia [Recovered/Resolved]
